FAERS Safety Report 6366190-9 (Version None)
Quarter: 2009Q3

REPORT INFORMATION
  Report Type: 
  Country: None (occurrence: None)
  Receive Date: 20090921
  Receipt Date: 20090911
  Transmission Date: 20100115
  Serious: Yes (Other)
  Sender: FDA-Public Use
  Company Number: US-RANBAXY-2009US-27998

PATIENT

DRUGS (1)
  1. LORATADINE AND PSEUDOEPHEDRINE SULFATE [Suspect]
     Indication: NASAL DECONGESTION THERAPY
     Dosage: 10 MG/240 MG, QD
     Route: 048
     Dates: start: 20090909, end: 20090910

REACTIONS (5)
  - BLINDNESS [None]
  - DIZZINESS [None]
  - DRUG INEFFECTIVE [None]
  - HEADACHE [None]
  - URTICARIA [None]
